FAERS Safety Report 5994438-9 (Version None)
Quarter: 2008Q4

REPORT INFORMATION
  Report Type: 
  Country: None (occurrence: None)
  Receive Date: 20081212
  Receipt Date: 20080925
  Transmission Date: 20090506
  Serious: No
  Sender: FDA-Public Use
  Company Number: US-ABBOTT-08P-163-0475273-00

PATIENT
  Sex: Female
  Weight: 63.56 kg

DRUGS (2)
  1. HUMIRA [Suspect]
     Indication: RHEUMATOID ARTHRITIS
     Route: 058
     Dates: start: 20070801
  2. LEFLUNOMIDE [Concomitant]
     Indication: RHEUMATOID ARTHRITIS
     Route: 048
     Dates: start: 20070301

REACTIONS (6)
  - BLOOD CHOLESTEROL INCREASED [None]
  - BRONCHITIS [None]
  - CHEST PAIN [None]
  - PYREXIA [None]
  - RESPIRATORY TRACT CONGESTION [None]
  - SINUSITIS [None]
